FAERS Safety Report 18854822 (Version 10)
Quarter: 2021Q2

REPORT INFORMATION
  Report Type: Report from Study
  Country: TR (occurrence: TR)
  Receive Date: 20210205
  Receipt Date: 20210416
  Transmission Date: 20210717
  Serious: Yes (Hospitalization)
  Sender: FDA-Public Use
  Company Number: TR-EISAI MEDICAL RESEARCH-EC-2021-086604

PATIENT
  Age: 4 Year
  Sex: Female
  Weight: 16.5 kg

DRUGS (4)
  1. LENVATINIB [Suspect]
     Active Substance: LENVATINIB
     Indication: EPENDYMOMA
     Route: 048
     Dates: start: 20210107, end: 20210112
  2. KEPPRA [Concomitant]
     Active Substance: LEVETIRACETAM
     Dates: start: 201803
  3. LENVATINIB [Suspect]
     Active Substance: LENVATINIB
     Route: 048
     Dates: start: 20210114, end: 20210117
  4. LENVATINIB [Suspect]
     Active Substance: LENVATINIB
     Route: 048
     Dates: start: 20210120, end: 20210202

REACTIONS (3)
  - Hydrocephalus [Recovered/Resolved]
  - Wound dehiscence [Recovered/Resolved]
  - Urinary tract infection [Recovered/Resolved]

NARRATIVE: CASE EVENT DATE: 20210112
